FAERS Safety Report 6344785-6 (Version None)
Quarter: 2009Q3

REPORT INFORMATION
  Report Type: 
  Country: None (occurrence: None)
  Receive Date: 20090904
  Receipt Date: 20090819
  Transmission Date: 20100115
  Serious: Yes (Other)
  Sender: FDA-Public Use
  Company Number: 2009S1000471

PATIENT
  Age: 66 Year
  Sex: Female

DRUGS (4)
  1. PHOSPHOSODA FLAVOR NOT SPECIFIED [Suspect]
     Indication: COLONOSCOPY
     Dosage: 90 ML; TOTAL; PO
     Route: 048
     Dates: start: 20060727, end: 20060727
  2. BENAZEPRIL HYDROCHLORIDE [Concomitant]
  3. OMEPRAZOL [Concomitant]
  4. CIPROFLAXACIN [Concomitant]

REACTIONS (8)
  - ABDOMINAL PAIN [None]
  - DIALYSIS [None]
  - LEUKOCYTOSIS [None]
  - NAUSEA [None]
  - NEPHROCALCINOSIS [None]
  - NEPHROPATHY [None]
  - RENAL FAILURE CHRONIC [None]
  - RENAL TRANSPLANT [None]
